FAERS Safety Report 8618949-2 (Version None)
Quarter: 2012Q3

REPORT INFORMATION
  Report Type: 
  Country: None (occurrence: None)
  Receive Date: 20120824
  Receipt Date: 20120820
  Transmission Date: 20120928
  Serious: Yes (Hospitalization)
  Sender: FDA-Public Use
  Company Number: PHFR2012GB004575

PATIENT
  Age: 70 Year
  Sex: Female

DRUGS (10)
  1. RAMIPRIL [Concomitant]
  2. TIOTROPIUM BROMIDE [Concomitant]
  3. LANSOPRAZOLE [Concomitant]
  4. INDACATEROL [Suspect]
     Indication: CHRONIC OBSTRUCTIVE PULMONARY DISEASE
     Dosage: 300 UG, QD
     Dates: start: 20120701, end: 20120807
  5. ASPIRIN [Concomitant]
  6. CITALOPRAM HYDROBROMIDE [Concomitant]
  7. SIMVASTATIN [Concomitant]
  8. BISOPROLOL FUMARATE [Concomitant]
  9. SALMETEROL/FLUTICASONE [Suspect]
     Dosage: 1 DF, BID
     Dates: end: 20120807
  10. ALBUTEROL SULATE [Concomitant]

REACTIONS (2)
  - ATRIAL FIBRILLATION [None]
  - PULMONARY OEDEMA [None]
